FAERS Safety Report 6219902-9 (Version None)
Quarter: 2009Q2

REPORT INFORMATION
  Report Type: 
  Country: None (occurrence: None)
  Receive Date: 20090609
  Receipt Date: 20090603
  Transmission Date: 20091009
  Serious: Yes (Life-Threatening)
  Sender: FDA-Public Use
  Company Number: JP-MERCK-0903USA05289

PATIENT
  Age: 45 Year
  Sex: Female
  Weight: 60 kg

DRUGS (4)
  1. PRIMAXIN [Suspect]
     Indication: PNEUMONIA ASPIRATION
     Route: 042
     Dates: start: 20090313, end: 20090317
  2. SOLU-CORTEF [Suspect]
     Indication: PNEUMONIA ASPIRATION
     Route: 042
     Dates: start: 20090313, end: 20090314
  3. SOLU-CORTEF [Suspect]
     Route: 042
     Dates: start: 20090314, end: 20090316
  4. CEFOTAXIME SODIUM [Concomitant]
     Indication: PNEUMONIA ASPIRATION
     Route: 065

REACTIONS (2)
  - HYPOKALAEMIA [None]
  - METABOLIC ALKALOSIS [None]
